FAERS Safety Report 24957036 (Version 1)
Quarter: 2025Q1

REPORT INFORMATION
  Report Type: Spontaneous
  Country: US (occurrence: US)
  Receive Date: 20250211
  Receipt Date: 20250211
  Transmission Date: 20250408
  Serious: No
  Sender: GE HEALTHCARE
  Company Number: US-GE HEALTHCARE-2025CSU001331

PATIENT
  Age: 65 Year
  Sex: Female

DRUGS (1)
  1. OMNIPAQUE [Suspect]
     Active Substance: IOHEXOL
     Indication: Diagnostic procedure
     Route: 065
     Dates: start: 20210123, end: 20210123

REACTIONS (1)
  - Urticaria [Unknown]

NARRATIVE: CASE EVENT DATE: 20210123
